FAERS Safety Report 6265025-2 (Version None)
Quarter: 2009Q3

REPORT INFORMATION
  Report Type: 
  Country: None (occurrence: None)
  Receive Date: 20090713
  Receipt Date: 20090630
  Transmission Date: 20100115
  Serious: Yes (Hospitalization)
  Sender: FDA-Public Use
  Company Number: NSADSS2002044307

PATIENT
  Sex: Female
  Weight: 201.35 kg

DRUGS (5)
  1. REMICADE [Suspect]
     Indication: SARCOIDOSIS
     Route: 041
     Dates: start: 20011127, end: 20020919
  2. REMICADE [Suspect]
     Indication: UVEITIS
     Route: 041
     Dates: start: 20011127, end: 20020919
  3. MYCOPHENOLATE MOFETIL [Concomitant]
  4. ADVIL [Concomitant]
  5. VOLTAREN [Concomitant]
     Route: 048

REACTIONS (4)
  - ANTINUCLEAR ANTIBODY POSITIVE [None]
  - ARTHRITIS [None]
  - PNEUMONIA PRIMARY ATYPICAL [None]
  - PULMONARY EMBOLISM [None]
